FAERS Safety Report 20951474 (Version 2)
Quarter: 2022Q2

REPORT INFORMATION
  Report Type: Spontaneous
  Country: US (occurrence: US)
  Receive Date: 20220613
  Receipt Date: 20220616
  Transmission Date: 20220720
  Serious: Yes (Other)
  Sender: FDA-Public Use
  Company Number: US-PFIZER INC-202200824529

PATIENT
  Age: 79 Year
  Sex: Female
  Weight: 63.5 kg

DRUGS (3)
  1. DISOPYRAMIDE PHOSPHATE [Suspect]
     Active Substance: DISOPYRAMIDE PHOSPHATE
     Indication: Hypertrophic cardiomyopathy
     Dosage: 1 DF, 3X/DAY (EVERY 8 HOURS, (3 TIMES A DAY))
     Route: 048
     Dates: end: 202105
  2. COUMADIN [Concomitant]
     Active Substance: WARFARIN SODIUM
     Indication: Mitral valve replacement
     Dosage: 4 MG, DAILY
     Dates: start: 202105
  3. COUMADIN [Concomitant]
     Active Substance: WARFARIN SODIUM
     Indication: Myectomy

REACTIONS (5)
  - Cardiac operation [Unknown]
  - Off label use [Unknown]
  - Dyspnoea [Unknown]
  - Discouragement [Unknown]
  - Asthenia [Unknown]

NARRATIVE: CASE EVENT DATE: 20210513
